FAERS Safety Report 24369702 (Version 1)
Quarter: 2024Q3

REPORT INFORMATION
  Report Type: Report from Study
  Country: CN (occurrence: CN)
  Receive Date: 20240927
  Receipt Date: 20240927
  Transmission Date: 20241016
  Serious: No
  Sender: ROCHE
  Company Number: CN-002147023-NVSC2023CN275911

PATIENT
  Age: 56 Year
  Sex: Male
  Weight: 60.0 kg

DRUGS (1)
  1. LUCENTIS [Suspect]
     Active Substance: RANIBIZUMAB
     Indication: Diabetic retinal oedema
     Dosage: 0.2ML OR 0.3ML EACH TIME, QMO
     Route: 047
     Dates: start: 202304, end: 202308

REACTIONS (2)
  - Drug ineffective [Unknown]
  - No adverse event [Unknown]

NARRATIVE: CASE EVENT DATE: 20230801
